FAERS Safety Report 8922165 (Version 1)
Quarter: 2012Q4

REPORT INFORMATION
  Report Type: 
  Country: CA (occurrence: CA)
  Receive Date: 20121123
  Receipt Date: 20121123
  Transmission Date: 20130627
  Serious: Yes (Life-Threatening, Hospitalization)
  Sender: FDA-Public Use
  Company Number: PHHY2012CA106709

PATIENT
  Sex: Female

DRUGS (2)
  1. ACLASTA [Suspect]
     Indication: OSTEOPOROSIS
     Dosage: UNK
     Route: 042
     Dates: start: 20101214
  2. ACLASTA [Suspect]
     Dosage: UNK
     Route: 042
     Dates: start: 20111214

REACTIONS (5)
  - Feeling abnormal [Unknown]
  - Gastric disorder [Unknown]
  - Pneumonia [Unknown]
  - Infarction [Unknown]
  - Infection [Unknown]
